FAERS Safety Report 16718001 (Version 1)
Quarter: 2019Q3

REPORT INFORMATION
  Report Type: Spontaneous
  Country: CN (occurrence: CN)
  Receive Date: 20190819
  Receipt Date: 20190819
  Transmission Date: 20191005
  Serious: Yes (Death, Hospitalization)
  Sender: FDA-Public Use
  Company Number: PHHY2019CN191432

PATIENT
  Age: 53 Year
  Sex: Female

DRUGS (2)
  1. METHYLPREDNISOLONE. [Suspect]
     Active Substance: METHYLPREDNISOLONE
     Indication: RENAL VASCULITIS
     Dosage: 320 MG, QD
     Route: 042
  2. METHYLPREDNISOLONE. [Suspect]
     Active Substance: METHYLPREDNISOLONE
     Dosage: 40 MG, QD
     Route: 048

REACTIONS (10)
  - Pulmonary cavitation [Fatal]
  - Hemiparesis [Fatal]
  - Haemoptysis [Fatal]
  - Brain abscess [Fatal]
  - Aphasia [Fatal]
  - Hypernatraemia [Fatal]
  - Nocardiosis [Fatal]
  - Pyrexia [Fatal]
  - Pseudomonas infection [Fatal]
  - Product use in unapproved indication [Unknown]
